FAERS Safety Report 16600002 (Version 1)
Quarter: 2019Q3

REPORT INFORMATION
  Report Type: Spontaneous
  Country: FR (occurrence: FR)
  Receive Date: 20190719
  Receipt Date: 20190719
  Transmission Date: 20191004
  Serious: Yes (Hospitalization)
  Sender: FDA-Public Use
  Company Number: FR-ALLERGAN-1928998US

PATIENT
  Sex: Male

DRUGS (2)
  1. TRIPTORELIN PAMOATE - BP [Suspect]
     Active Substance: TRIPTORELIN PAMOATE
     Indication: PROSTATE CANCER
     Dosage: 1 GBQ, Q MONTH
     Route: 065
     Dates: start: 201902
  2. TAMSULOSINE MYLAN L.P. 0,4 MG, G?LULE ? LIB?RATION PROLONG?E [Suspect]
     Active Substance: TAMSULOSIN HYDROCHLORIDE
     Indication: PRODUCT USED FOR UNKNOWN INDICATION
     Dosage: UNK
     Route: 065
     Dates: start: 201904, end: 20190514

REACTIONS (2)
  - Toxic skin eruption [Unknown]
  - Pyrexia [Recovered/Resolved]

NARRATIVE: CASE EVENT DATE: 20190507
